FAERS Safety Report 5576031-5 (Version None)
Quarter: 2007Q4

REPORT INFORMATION
  Report Type: 
  Country: None (occurrence: None)
  Receive Date: 20071228
  Receipt Date: 20071018
  Transmission Date: 20080405
  Serious: No
  Sender: FDA-Public Use
  Company Number: A0687166A

PATIENT
  Age: 72 Year
  Sex: Female

DRUGS (3)
  1. ADVAIR DISKUS 100/50 [Suspect]
     Indication: ASTHMA
     Dosage: 2PUFF TWICE PER DAY
     Route: 055
     Dates: start: 20070930, end: 20071001
  2. PREDNISONE [Concomitant]
  3. COMBIVENT [Concomitant]

REACTIONS (4)
  - APHONIA [None]
  - DIZZINESS [None]
  - PALPITATIONS [None]
  - THROAT TIGHTNESS [None]
